FAERS Safety Report 16863827 (Version 1)
Quarter: 2019Q3

REPORT INFORMATION
  Report Type: Spontaneous
  Country: FR (occurrence: FR)
  Receive Date: 20190927
  Receipt Date: 20190927
  Transmission Date: 20191005
  Serious: Yes (Life-Threatening, Other)
  Sender: FDA-Public Use
  Company Number: FR-JNJFOC-20190930748

PATIENT
  Age: 35 Year
  Sex: Male

DRUGS (3)
  1. RISPERDAL [Suspect]
     Active Substance: RISPERIDONE
     Route: 065
  2. SOLU-MEDROL [Interacting]
     Active Substance: METHYLPREDNISOLONE SODIUM SUCCINATE
     Indication: OPTIC NEURITIS
     Dosage: 1 G, 1X/DAY
     Route: 040
     Dates: start: 20080908, end: 20080912
  3. RISPERDAL [Suspect]
     Active Substance: RISPERIDONE
     Indication: BIPOLAR DISORDER
     Dosage: 2 MG, 1X/DAY
     Route: 065

REACTIONS (16)
  - Suicide attempt [Recovered/Resolved with Sequelae]
  - Panic attack [Recovered/Resolved with Sequelae]
  - Drug interaction [Unknown]
  - Psychotic disorder [Recovered/Resolved with Sequelae]
  - Intentional self-injury [Recovered/Resolved with Sequelae]
  - Spinal fracture [Recovered/Resolved with Sequelae]
  - Head injury [Unknown]
  - Confusional state [Unknown]
  - Fall [Unknown]
  - Anxiety [Unknown]
  - Delirium [Unknown]
  - Seizure [Recovered/Resolved with Sequelae]
  - Dislocation of vertebra [Unknown]
  - Insomnia [Unknown]
  - Paraplegia [Recovered/Resolved with Sequelae]
  - Decreased appetite [Unknown]

NARRATIVE: CASE EVENT DATE: 20080922
